FAERS Safety Report 17358635 (Version 1)
Quarter: 2020Q1

REPORT INFORMATION
  Report Type: Other
  Country: FR (occurrence: FR)
  Receive Date: 20200201
  Receipt Date: 20200201
  Transmission Date: 20200409
  Serious: Yes (Hospitalization)
  Sender: FDA-Public Use
  Company Number: FR-CELLTRION INC.-2020FR018099

PATIENT

DRUGS (2)
  1. CYMBALTA [Concomitant]
     Active Substance: DULOXETINE HYDROCHLORIDE
     Dosage: UNK
     Route: 048
  2. RITUXIMAB (UNKNOWN) [Suspect]
     Active Substance: RITUXIMAB
     Indication: NEUROMYELITIS OPTICA SPECTRUM DISORDER
     Dosage: UNK
     Route: 042
     Dates: start: 20160315

REACTIONS (2)
  - Product use in unapproved indication [Unknown]
  - Seminoma [Recovering/Resolving]

NARRATIVE: CASE EVENT DATE: 201907
